FAERS Safety Report 5609322-X (Version None)
Quarter: 2008Q1

REPORT INFORMATION
  Report Type: 
  Country: None (occurrence: None)
  Receive Date: 20080131
  Receipt Date: 20080129
  Transmission Date: 20080703
  Serious: Yes (Death, Other)
  Sender: FDA-Public Use
  Company Number: US-ASTRAZENECA-2007UW25742

PATIENT
  Age: 46 Year
  Sex: Male

DRUGS (3)
  1. SEROQUEL [Suspect]
     Indication: PSYCHOTIC DISORDER
     Route: 048
     Dates: start: 20070920
  2. RISPERDAL CONSTA [Suspect]
     Indication: PSYCHOTIC DISORDER
     Dosage: 50MG IM Q2WKS X 2 YRS
     Route: 030
  3. DIAZEPAM [Concomitant]
     Indication: ANXIETY

REACTIONS (1)
  - CORONARY ARTERY OCCLUSION [None]
